FAERS Safety Report 8200062-X (Version None)
Quarter: 2012Q1

REPORT INFORMATION
  Report Type: 
  Country: None (occurrence: None)
  Receive Date: 20120306
  Receipt Date: 20120222
  Transmission Date: 20120608
  Serious: Yes (Hospitalization)
  Sender: FDA-Public Use
  Company Number: TPA2012A00983

PATIENT
  Age: 4 Decade
  Sex: Male

DRUGS (2)
  1. ULORIC [Suspect]
     Indication: GOUT
     Dosage: PER ORAL
     Route: 048
  2. ULORIC [Suspect]
     Indication: BLOOD URIC ACID INCREASED
     Dosage: PER ORAL
     Route: 048

REACTIONS (1)
  - CARDIOVASCULAR DISORDER [None]
